FAERS Safety Report 25991256 (Version 1)
Quarter: 2025Q4

REPORT INFORMATION
  Report Type: Spontaneous
  Country: EU (occurrence: EU)
  Receive Date: 20251103
  Receipt Date: 20251103
  Transmission Date: 20260117
  Serious: Yes (Hospitalization)
  Sender: SANDOZ
  Company Number: None

PATIENT
  Age: 68 Year
  Sex: Female
  Weight: 64 kg

DRUGS (23)
  1. DIPRIVAN [Suspect]
     Active Substance: PROPOFOL
     Indication: Anaesthesia
     Dosage: 150 MG
     Route: 042
     Dates: start: 20250924, end: 20250924
  2. CETIRIZINE [Suspect]
     Active Substance: CETIRIZINE HYDROCHLORIDE
     Indication: Product used for unknown indication
     Dosage: UNK
     Route: 065
     Dates: start: 20250925
  3. CEFTRIAXONE SODIUM [Suspect]
     Active Substance: CEFTRIAXONE SODIUM
     Indication: Antibiotic prophylaxis
     Dosage: 1 G, 1 SEULE PRISE
     Route: 065
     Dates: start: 20250924, end: 20250924
  4. DECADRON (DEXAMETHASONE SODIUM PHOSPHATE) [Suspect]
     Active Substance: DEXAMETHASONE SODIUM PHOSPHATE
     Indication: Product used for unknown indication
     Dosage: 8 MG
     Route: 042
     Dates: start: 20250924, end: 20250924
  5. KETAMINE [Suspect]
     Active Substance: KETAMINE
     Indication: Laparotomy
     Dosage: 20 MG
     Route: 042
     Dates: start: 20250924, end: 20250924
  6. KETOPROFEN [Suspect]
     Active Substance: KETOPROFEN
     Indication: Procedural pain
     Dosage: 100 MG
     Route: 042
     Dates: start: 20250924, end: 20250924
  7. METRONIDAZOLE [Suspect]
     Active Substance: METRONIDAZOLE
     Indication: Antibiotic prophylaxis
     Dosage: 500 MG, 1 SEULE PRISE
     Route: 065
     Dates: start: 20250924, end: 20250924
  8. NEFOPAM [Suspect]
     Active Substance: NEFOPAM
     Indication: Procedural pain
     Dosage: 20 MG (NEFOPAM (CHLORHYDRATE DE))
     Route: 042
     Dates: start: 20250924, end: 20250924
  9. PERFALGAN [Suspect]
     Active Substance: ACETAMINOPHEN
     Indication: Pain
     Dosage: 1 G
     Route: 042
     Dates: start: 20250924, end: 20250924
  10. LACTATED RINGERS SOLUTION [Suspect]
     Active Substance: CALCIUM CHLORIDE\POTASSIUM CHLORIDE\SODIUM CHLORIDE\SODIUM LACTATE
     Indication: Laparotomy
     Dosage: 500 ML
     Route: 042
     Dates: start: 20250924, end: 20250924
  11. ROCURONIUM [Suspect]
     Active Substance: ROCURONIUM BROMIDE
     Indication: Anaesthesia
     Dosage: 600 MG (ROCURONIUM (BROMURE DE))
     Route: 042
     Dates: start: 20250924, end: 20250924
  12. XYLOCAINE [Suspect]
     Active Substance: LIDOCAINE HYDROCHLORIDE
     Indication: Anaesthesia
     Dosage: 500 ML
     Route: 042
     Dates: start: 20250924, end: 20250924
  13. MORPHINE SULFATE [Concomitant]
     Active Substance: MORPHINE SULFATE
     Indication: Pain
     Dosage: 5 MG (MAXIMUM 5 PAR JOUR SI BESOIN) (ACTISKENAN 5 MG, COMPRIM? ORODISPERSIBLE)
     Route: 048
  14. ESCITALOPRAM [Concomitant]
     Active Substance: ESCITALOPRAM OXALATE
     Indication: Depression
     Dosage: 5 MG, QD
     Route: 048
  15. FUROSEMIDE [Concomitant]
     Active Substance: FUROSEMIDE
     Indication: Product used for unknown indication
     Dosage: 20 MG, QD,LE MATIN
     Route: 048
  16. TROPATEPINE HYDROCHLORIDE [Concomitant]
     Active Substance: TROPATEPINE HYDROCHLORIDE
     Indication: Neuroleptic-induced deficit syndrome
     Dosage: 10 MG, QD, 10MG-0-0 (LEPTICUR 10 MG, COMPRIM?)
     Route: 048
  17. POLYETHYLENE GLYCOL 4000 [Concomitant]
     Active Substance: POLYETHYLENE GLYCOL 4000
     Indication: Constipation
     Dosage: 30 G, QD (10G-10G-10G)
     Route: 048
  18. NICOTINE [Concomitant]
     Active Substance: NICOTINE
     Indication: Ex-tobacco user
     Dosage: 1.5 MG,1.5MG X 1 ? 10 PAR JOUR
     Route: 048
  19. OLANZAPINE [Concomitant]
     Active Substance: OLANZAPINE
     Indication: Mania
     Dosage: 20 MG, QD (20MG-0-0)
     Route: 048
  20. ACETAMINOPHEN [Concomitant]
     Active Substance: ACETAMINOPHEN
     Indication: Pain
     Dosage: 1 G,SI BESOIN 1G MATIN, MIDI ET SOIR
     Route: 048
  21. RISPERDAL [Concomitant]
     Active Substance: RISPERIDONE
     Indication: Psychiatric decompensation
     Dosage: 0.5 MG, QD, RISPERDALORO 0,5 MG, COMPRIM? ORODISPERSIBLE, LE SOIR
     Route: 048
  22. SKENAN [Concomitant]
     Active Substance: MORPHINE SULFATE
     Indication: Pain
     Dosage: 10 MG, Q12H (10MG-0-10MG) (SKENAN L.P. 10 MG, MICROGRANULES ? LIB?RATION PROLONG?E EN G?LULE)
     Route: 048
  23. LIDOCAINE [Concomitant]
     Active Substance: LIDOCAINE
     Indication: Pain
     Dosage: 1 DF (VERSATIS 5 %, EMPL?TRE M?DICAMENTEUX)
     Route: 003

REACTIONS (1)
  - Skin reaction [Recovered/Resolved]

NARRATIVE: CASE EVENT DATE: 20250925
